FAERS Safety Report 21282825 (Version 2)
Quarter: 2022Q3

REPORT INFORMATION
  Report Type: Spontaneous
  Country: JP (occurrence: JP)
  Receive Date: 20220901
  Receipt Date: 20220909
  Transmission Date: 20221027
  Serious: Yes (Other)
  Sender: FDA-Public Use
  Company Number: JP-MSD-2208JPN003071J

PATIENT
  Age: 37 Year
  Sex: Female
  Weight: 72 kg

DRUGS (7)
  1. ROCURONIUM BROMIDE [Suspect]
     Active Substance: ROCURONIUM BROMIDE
     Indication: Induction of anaesthesia
     Dosage: 80 MILLIGRAM
     Route: 042
  2. BRIDION [Suspect]
     Active Substance: SUGAMMADEX
     Indication: Neuromuscular blockade reversal
     Dosage: 200 MILLIGRAM
     Route: 065
  3. MAGNESIUM SULFATE [Concomitant]
     Active Substance: MAGNESIUM SULFATE
     Indication: Hypertensive nephropathy
     Dosage: 1G*HR-1
     Route: 065
  4. NICARDIPINE HYDROCHLORIDE [Concomitant]
     Active Substance: NICARDIPINE HYDROCHLORIDE
     Indication: Hypertensive nephropathy
     Dosage: 2MG*HR-1
     Route: 065
  5. THIOPENTAL SODIUM [Concomitant]
     Active Substance: THIOPENTAL SODIUM
     Indication: Induction of anaesthesia
     Dosage: 350 MILLIGRAM
     Route: 065
  6. FENTANYL CITRATE [Concomitant]
     Active Substance: FENTANYL CITRATE
     Indication: Induction of anaesthesia
     Dosage: 200 MICROGRAM
     Route: 065
  7. REMIFENTANIL HYDROCHLORIDE [Concomitant]
     Active Substance: REMIFENTANIL HYDROCHLORIDE
     Indication: Induction of anaesthesia
     Dosage: 0.4MICROGRAM*KG-1*MIN-1
     Route: 065

REACTIONS (3)
  - Hypertensive crisis [Recovering/Resolving]
  - Overdose [Unknown]
  - Maternal exposure during delivery [Unknown]
